FAERS Safety Report 4559361-5 (Version None)
Quarter: 2005Q1

REPORT INFORMATION
  Report Type: 
  Country: None (occurrence: None)
  Receive Date: 20050119
  Receipt Date: 20041011
  Transmission Date: 20050727
  Serious: Yes (Hospitalization)
  Sender: FDA-Public Use
  Company Number: A02200403032

PATIENT
  Age: 46 Year
  Sex: Male

DRUGS (5)
  1. STILNOX                (ZOLPIDEM) [Suspect]
     Indication: SLEEP DISORDER
     Dosage: 10 MG, ORAL
     Route: 048
     Dates: end: 20040817
  2. ATORVASTATIN CALCIUM [Suspect]
     Dosage: 40 MG OD, ORAL
     Route: 048
     Dates: end: 20040817
  3. NEXIUM [Suspect]
     Dosage: 40 MG PO
     Route: 048
     Dates: end: 20040817
  4. KARDEGIC (ACETYLSALICYLATE LYSINE) [Concomitant]
  5. AMLODIPINE BESYLATE [Concomitant]

REACTIONS (1)
  - CYTOLYTIC HEPATITIS [None]
